FAERS Safety Report 18923015 (Version 1)
Quarter: 2021Q1

REPORT INFORMATION
  Report Type: Other
  Country: US (occurrence: US)
  Receive Date: 20210222
  Receipt Date: 20210222
  Transmission Date: 20210420
  Serious: Yes (Other)
  Sender: FDA-Public Use
  Company Number: US-ROCHE-2773246

PATIENT
  Sex: Male

DRUGS (5)
  1. DOXORUBICIN [Suspect]
     Active Substance: DOXORUBICIN
     Indication: CHRONIC ACTIVE EPSTEIN-BARR VIRUS INFECTION
     Route: 065
  2. CYCLOPHOSPHAMIDE. [Suspect]
     Active Substance: CYCLOPHOSPHAMIDE
     Indication: CHRONIC ACTIVE EPSTEIN-BARR VIRUS INFECTION
     Route: 065
  3. PREDNISONE. [Suspect]
     Active Substance: PREDNISONE
     Indication: CHRONIC ACTIVE EPSTEIN-BARR VIRUS INFECTION
     Route: 065
  4. VINCRISTINE [Suspect]
     Active Substance: VINCRISTINE
     Indication: CHRONIC ACTIVE EPSTEIN-BARR VIRUS INFECTION
     Route: 065
  5. RITUXIMAB. [Suspect]
     Active Substance: RITUXIMAB
     Indication: CHRONIC ACTIVE EPSTEIN-BARR VIRUS INFECTION
     Route: 065

REACTIONS (1)
  - Neuroendocrine carcinoma of the skin [Unknown]
